FAERS Safety Report 24680309 (Version 1)
Quarter: 2024Q4

REPORT INFORMATION
  Report Type: Report from Study
  Country: US (occurrence: US)
  Receive Date: 20241129
  Receipt Date: 20241129
  Transmission Date: 20250115
  Serious: Yes (Other)
  Sender: SUNOVION
  Company Number: US-SMPA-2024SPA005246AA

PATIENT

DRUGS (1)
  1. RETHYMIC [Suspect]
     Active Substance: ALLOGENIC THYMOCYTE-DEPLETED THYMUS TISSUE-AGDC
     Dosage: 19 SLICES (8388 MM2/M2)
     Route: 050
     Dates: start: 20220802, end: 20220802

REACTIONS (1)
  - Adenovirus reactivation [Not Recovered/Not Resolved]

NARRATIVE: CASE EVENT DATE: 20240821
